FAERS Safety Report 8796571 (Version 1)
Quarter: 2012Q4

REPORT INFORMATION
  Report Type: 
  Country: PL (occurrence: PL)
  Receive Date: 20120919
  Receipt Date: 20120919
  Transmission Date: 20130627
  Serious: Yes (Other)
  Sender: FDA-Public Use
  Company Number: PL-ASTRAZENECA-2012SE71104

PATIENT
  Age: 60 Year
  Sex: Male

DRUGS (3)
  1. METOCARD [Suspect]
     Route: 048
     Dates: start: 201209
  2. BETALOC IV [Suspect]
     Indication: ATRIAL FIBRILLATION
     Route: 042
     Dates: start: 20120909, end: 20120909
  3. CORDARONE [Suspect]
     Dosage: 75 MG IN 30 MINUTES
     Route: 065
     Dates: start: 20120909

REACTIONS (5)
  - Hypoxia [Recovered/Resolved]
  - Pulmonary thrombosis [Unknown]
  - Hepatic enzyme increased [Recovering/Resolving]
  - Dyspnoea [Recovered/Resolved]
  - Blood pressure decreased [Unknown]
